FAERS Safety Report 6730554-1 (Version None)
Quarter: 2010Q2

REPORT INFORMATION
  Report Type: 
  Country: None (occurrence: None)
  Receive Date: 20100518
  Receipt Date: 20100510
  Transmission Date: 20101027
  Serious: Yes (Other)
  Sender: FDA-Public Use
  Company Number: US-ASTRAZENECA-2010SE21376

PATIENT
  Age: 49 Year
  Sex: Female

DRUGS (13)
  1. SEROQUEL XR [Suspect]
     Indication: BIPOLAR DISORDER
     Route: 048
     Dates: start: 20100305
  2. LAMICTAL [Concomitant]
  3. CLONAZEPAM [Concomitant]
  4. COQ10 [Concomitant]
  5. PAXIL [Concomitant]
  6. FERROUS SULFATE TAB [Concomitant]
  7. DEPLIA [Concomitant]
  8. TUMS [Concomitant]
  9. PROMETRIUM [Concomitant]
  10. OMEGA [Concomitant]
  11. D2 [Concomitant]
  12. FOLIC ACID [Concomitant]
  13. ESTROG [Concomitant]

REACTIONS (4)
  - LOCALISED OEDEMA [None]
  - OEDEMA [None]
  - OEDEMA PERIPHERAL [None]
  - WEIGHT INCREASED [None]
